FAERS Safety Report 16590040 (Version 1)
Quarter: 2019Q3

REPORT INFORMATION
  Report Type: Other
  Country: US (occurrence: US)
  Receive Date: 20190718
  Receipt Date: 20190718
  Transmission Date: 20191004
  Serious: No
  Sender: FDA-Public Use
  Company Number: US-SWEDISH ORPHAN BIOVITRUM-2019US0551

PATIENT
  Sex: Female

DRUGS (27)
  1. NEURONTIN [Concomitant]
     Active Substance: GABAPENTIN
  2. LIVALO [Concomitant]
     Active Substance: PITAVASTATIN CALCIUM
  3. CYMBALTA [Concomitant]
     Active Substance: DULOXETINE HYDROCHLORIDE
  4. KINERET [Suspect]
     Active Substance: ANAKINRA
     Route: 058
  5. ZANAFLEX [Concomitant]
     Active Substance: TIZANIDINE HYDROCHLORIDE
  6. DESYREL [Concomitant]
     Active Substance: TRAZODONE HYDROCHLORIDE
  7. FLONASE [Concomitant]
     Active Substance: FLUTICASONE PROPIONATE
  8. TOPROL XL [Concomitant]
     Active Substance: METOPROLOL SUCCINATE
  9. ALBUTEROL. [Concomitant]
     Active Substance: ALBUTEROL
  10. SENNA [Concomitant]
     Active Substance: SENNA LEAF\SENNOSIDES\SENNOSIDES A AND B
  11. ESTRACE [Concomitant]
     Active Substance: ESTRADIOL
  12. TYLENOL WITH CODEINE [Concomitant]
     Active Substance: ACETAMINOPHEN\CODEINE PHOSPHATE
  13. ACYCLOVIR. [Concomitant]
     Active Substance: ACYCLOVIR
  14. CALCIUM [Concomitant]
     Active Substance: CALCIUM
  15. PEPCID [Concomitant]
     Active Substance: FAMOTIDINE
  16. FOLIC ACID. [Concomitant]
     Active Substance: FOLIC ACID
  17. COLACE [Concomitant]
     Active Substance: DOCUSATE SODIUM
  18. ADVAIR HFA [Concomitant]
     Active Substance: FLUTICASONE PROPIONATE\SALMETEROL XINAFOATE
  19. LISINOPRIL. [Concomitant]
     Active Substance: LISINOPRIL
  20. ATENOLOL. [Concomitant]
     Active Substance: ATENOLOL
  21. VITAMIN D3 [Concomitant]
     Active Substance: CHOLECALCIFEROL
  22. INSULIN [Concomitant]
     Active Substance: INSULIN NOS
  23. ALLEGRA [Concomitant]
     Active Substance: FEXOFENADINE HYDROCHLORIDE
  24. PLAQUENIL [Concomitant]
     Active Substance: HYDROXYCHLOROQUINE SULFATE
  25. PRILOSEC [Concomitant]
     Active Substance: OMEPRAZOLE MAGNESIUM
  26. ZYLOPRIM [Concomitant]
     Active Substance: ALLOPURINOL
  27. METHOTREXATE. [Concomitant]
     Active Substance: METHOTREXATE

REACTIONS (1)
  - Injection site pain [Unknown]
